FAERS Safety Report 14779121 (Version 3)
Quarter: 2018Q2

REPORT INFORMATION
  Report Type: Spontaneous
  Country: BG (occurrence: BG)
  Receive Date: 20180419
  Receipt Date: 20180517
  Transmission Date: 20180711
  Serious: Yes (Death, Hospitalization, Other)
  Sender: FDA-Public Use
  Company Number: BG-BAYER-2018-070462

PATIENT
  Age: 57 Year
  Sex: Male

DRUGS (1)
  1. NEXAVAR [Suspect]
     Active Substance: SORAFENIB
     Indication: RENAL CELL CARCINOMA
     Dosage: 800 MG DAILY
     Route: 048
     Dates: start: 2017

REACTIONS (13)
  - Acute kidney injury [Fatal]
  - Brain oedema [Fatal]
  - Diabetic hyperosmolar coma [None]
  - Seizure [None]
  - Hepatic lesion [None]
  - Anaemia [None]
  - Hepatic failure [Fatal]
  - Renal cell carcinoma [None]
  - Lung disorder [None]
  - General physical health deterioration [None]
  - Cardiac failure [Fatal]
  - Respiratory failure [Fatal]
  - Pulmonary oedema [Fatal]

NARRATIVE: CASE EVENT DATE: 201710
